FAERS Safety Report 21005416 (Version 1)
Quarter: 2022Q2

REPORT INFORMATION
  Report Type: Spontaneous
  Country: US (occurrence: None)
  Receive Date: 20220624
  Receipt Date: 20220624
  Transmission Date: 20220721
  Serious: No
  Sender: FDA-Public Use
  Company Number: None

PATIENT
  Age: 61 Year
  Sex: Female
  Weight: 138.4 kg

DRUGS (10)
  1. CAPECITABINE [Suspect]
     Active Substance: CAPECITABINE
     Dosage: FREQUENCY : TWICE A DAY;?
     Route: 048
  2. CAPECITABINE [Suspect]
     Active Substance: CAPECITABINE
     Dosage: FREQUENCY : TWICE A DAY;?
     Route: 048
  3. ALBUTEROL [Concomitant]
  4. ANASTROZOLE [Concomitant]
     Active Substance: ANASTROZOLE
  5. IBUPROFEN [Concomitant]
     Active Substance: IBUPROFEN
  6. MAVYRET [Concomitant]
  7. OXYCODONE [Concomitant]
     Active Substance: OXYCODONE
  8. PERCOCET [Concomitant]
  9. SERTRALINE [Concomitant]
  10. TYLENOL [Concomitant]

REACTIONS (1)
  - Disease progression [None]
